FAERS Safety Report 7817509-0 (Version None)
Quarter: 2011Q4

REPORT INFORMATION
  Report Type: 
  Country: None (occurrence: None)
  Receive Date: 20111017
  Receipt Date: 20111012
  Transmission Date: 20120403
  Serious: Yes (Other)
  Sender: FDA-Public Use
  Company Number: GB-ROCHE-1004598

PATIENT
  Age: 37 Year
  Sex: Female

DRUGS (2)
  1. PEG-INTERFERON ALFA 2A [Suspect]
     Indication: HEPATITIS C
     Dates: start: 20110905
  2. ACETAMINOPHEN [Concomitant]

REACTIONS (3)
  - EPISTAXIS [None]
  - SYNCOPE [None]
  - HEADACHE [None]
